FAERS Safety Report 6911844-6 (Version None)
Quarter: 2010Q3

REPORT INFORMATION
  Report Type: 
  Country: None (occurrence: None)
  Receive Date: 20100806
  Receipt Date: 20070806
  Transmission Date: 20110219
  Serious: Yes (Other)
  Sender: FDA-Public Use
  Company Number: US-PFIZER INC-2007064926

PATIENT

DRUGS (2)
  1. VFEND [Suspect]
     Indication: ASPERGILLOSIS
     Dates: start: 20070410
  2. IMMUNOSUPPRESSIVE AGENTS [Concomitant]

REACTIONS (1)
  - PANCREATITIS ACUTE [None]
